FAERS Safety Report 7803824-3 (Version None)
Quarter: 2011Q4

REPORT INFORMATION
  Report Type: 
  Country: None (occurrence: None)
  Receive Date: 20111010
  Receipt Date: 20111007
  Transmission Date: 20120403
  Serious: No
  Sender: FDA-Public Use
  Company Number: PHEH2011US06235

PATIENT
  Sex: Female

DRUGS (1)
  1. TASIGNA [Suspect]
     Dosage: 150 MG, BID
     Route: 048
     Dates: start: 20111006

REACTIONS (1)
  - INCORRECT DOSE ADMINISTERED [None]
